FAERS Safety Report 25435592 (Version 2)
Quarter: 2025Q4

REPORT INFORMATION
  Report Type: Spontaneous
  Country: EU (occurrence: EU)
  Receive Date: 20250613
  Receipt Date: 20251119
  Transmission Date: 20260117
  Serious: Yes (Hospitalization, Other)
  Sender: MYLAN
  Company Number: None

PATIENT
  Age: 24 Year
  Sex: Male
  Weight: 71.2 kg

DRUGS (11)
  1. POSACONAZOLE [Interacting]
     Active Substance: POSACONAZOLE
     Indication: Antifungal prophylaxis
     Dosage: UNK
  2. POSACONAZOLE [Interacting]
     Active Substance: POSACONAZOLE
     Dosage: 300 MG, QD (STOP UNKNOWN, PROBABLY AFTER ALLOGENEIC STEM CELL TRANSPLANT)
     Dates: start: 20210916
  3. MIDOSTAURIN [Interacting]
     Active Substance: MIDOSTAURIN
     Indication: Acute myeloid leukaemia
     Dosage: 50 MILLIGRAM, QD (INITIATED ON DAY 8)
     Dates: start: 20210917, end: 20210929
  4. MIDOSTAURIN [Interacting]
     Active Substance: MIDOSTAURIN
     Dosage: 50 MILLIGRAM, BID (100 MG, QD) (ON DAY 8)
     Dates: start: 20210924, end: 20210929
  5. CYTARABINE [Suspect]
     Active Substance: CYTARABINE
     Indication: Acute myeloid leukaemia
     Dosage: 396 MG, QD (CONTINUOUSLY)
     Dates: start: 20210917, end: 20210921
  6. CYTARABINE [Suspect]
     Active Substance: CYTARABINE
     Dosage: HIGH DOSE FOR 4 CYCLES
  7. CYTARABINE [Suspect]
     Active Substance: CYTARABINE
     Dosage: 200 MILLIGRAM/SQ. METER(200 MG/M2 (ON DAYS 1 TO 7)
  8. DAUNORUBICIN [Concomitant]
     Active Substance: DAUNORUBICIN
     Indication: Acute myeloid leukaemia
     Dosage: 119 MILLIGRAM, QD
     Dates: start: 20210917, end: 20210919
  9. DAUNORUBICIN [Concomitant]
     Active Substance: DAUNORUBICIN
     Indication: Acute myeloid leukaemia
     Dosage: 60 MILLIGRAM/SQ. METER (ON DAYS 1 TO 3)
  10. POSACONAZOLE [Concomitant]
     Active Substance: POSACONAZOLE
     Indication: Antifungal prophylaxis
     Dosage: 300 MILLIGRAM, QD (STOP UNKNOWN, PROBABLY AFTER ALLOGENEIC STEM CELL TRANSPLANT)
     Dates: start: 20210916
  11. CYTARABINE [Concomitant]
     Active Substance: CYTARABINE
     Indication: Acute myeloid leukaemia
     Dosage: UNK (FOUR CYCLES OF HIGH-DOSE)

REACTIONS (6)
  - Myopericarditis [Recovered/Resolved]
  - Myocarditis [Recovered/Resolved]
  - Chest pain [Recovered/Resolved]
  - Febrile neutropenia [Recovered/Resolved]
  - Drug interaction [Unknown]
  - Drug ineffective [Unknown]

NARRATIVE: CASE EVENT DATE: 20210929
